FAERS Safety Report 18549616 (Version 1)
Quarter: 2020Q4

REPORT INFORMATION
  Report Type: Spontaneous
  Country: FR (occurrence: FR)
  Receive Date: 20201126
  Receipt Date: 20201126
  Transmission Date: 20210114
  Serious: Yes (Other)
  Sender: FDA-Public Use
  Company Number: FR-ACCORD-209203

PATIENT
  Age: 75 Year
  Sex: Female
  Weight: 67.8 kg

DRUGS (8)
  1. SPASFON [Concomitant]
  2. NOVORAPID [Concomitant]
     Active Substance: INSULIN ASPART
  3. SPIRONOLACTONE. [Suspect]
     Active Substance: SPIRONOLACTONE
     Indication: HYPERTENSION
     Route: 048
     Dates: end: 20191223
  4. FUROSEMIDE. [Suspect]
     Active Substance: FUROSEMIDE
     Indication: HYPERTENSION
     Route: 048
     Dates: end: 20191223
  5. LANSOPRAZOLE. [Concomitant]
     Active Substance: LANSOPRAZOLE
  6. PROPRANOLOL [Concomitant]
     Active Substance: PROPRANOLOL HYDROCHLORIDE
  7. OXAZEPAM. [Concomitant]
     Active Substance: OXAZEPAM
  8. RIFAXIMIN. [Concomitant]
     Active Substance: RIFAXIMIN

REACTIONS (2)
  - Hyperkalaemia [Recovered/Resolved]
  - Dehydration [Recovered/Resolved]

NARRATIVE: CASE EVENT DATE: 20191223
